FAERS Safety Report 8171182-3 (Version None)
Quarter: 2012Q1

REPORT INFORMATION
  Report Type: 
  Country: None (occurrence: None)
  Receive Date: 20120228
  Receipt Date: 20111227
  Transmission Date: 20120608
  Serious: Yes (Other)
  Sender: FDA-Public Use
  Company Number: US-BRISTOL-MYERS SQUIBB COMPANY-16269029

PATIENT
  Age: 48 Year
  Sex: Female

DRUGS (2)
  1. KOMBIGLYZE XR [Suspect]
  2. ONGLYZA [Suspect]

REACTIONS (1)
  - PANCREATITIS [None]
